FAERS Safety Report 7183206-0 (Version None)
Quarter: 2010Q4

REPORT INFORMATION
  Report Type: 
  Country: None (occurrence: None)
  Receive Date: 20101222
  Receipt Date: 20091123
  Transmission Date: 20110411
  Serious: Yes (Other)
  Sender: FDA-Public Use
  Company Number: A0823498A

PATIENT
  Sex: Male

DRUGS (1)
  1. FLONASE [Suspect]
     Dosage: 50MCG UNKNOWN
     Route: 045
     Dates: start: 20040101

REACTIONS (2)
  - AGEUSIA [None]
  - ANOSMIA [None]
